FAERS Safety Report 25826718 (Version 2)
Quarter: 2025Q3

REPORT INFORMATION
  Report Type: Report from Study
  Country: CA (occurrence: CA)
  Receive Date: 20250920
  Receipt Date: 20250926
  Transmission Date: 20251020
  Serious: Yes (Other)
  Sender: CELLTRION
  Company Number: CA-CELLTRION INC.-2025CA028098

PATIENT

DRUGS (2)
  1. OMALIZUMAB [Suspect]
     Active Substance: OMALIZUMAB
     Indication: Chronic spontaneous urticaria
     Dosage: MAINTENANCE - 300 MG EVERY 4 WEEKS
     Route: 058
     Dates: start: 20250801
  2. OMALIZUMAB [Suspect]
     Active Substance: OMALIZUMAB
     Route: 058
     Dates: start: 20250902

REACTIONS (20)
  - Anaphylactic reaction [Unknown]
  - Consciousness fluctuating [Unknown]
  - Acne [Unknown]
  - Acne cystic [Unknown]
  - Condition aggravated [Unknown]
  - Diarrhoea [Unknown]
  - Dizziness [Unknown]
  - Food allergy [Unknown]
  - Histamine level increased [Unknown]
  - Oral pain [Unknown]
  - Poor quality sleep [Unknown]
  - Pruritus [Unknown]
  - Tremor [Unknown]
  - Mastocytosis [Unknown]
  - Headache [Unknown]
  - Injection related reaction [Recovered/Resolved]
  - Injection site irritation [Unknown]
  - Injection site mass [Unknown]
  - Injection site pruritus [Unknown]
  - Therapy interrupted [Unknown]
